FAERS Safety Report 6583528-8 (Version None)
Quarter: 2010Q1

REPORT INFORMATION
  Report Type: 
  Country: None (occurrence: None)
  Receive Date: 20100216
  Receipt Date: 20100209
  Transmission Date: 20100710
  Serious: Yes (Hospitalization, Other)
  Sender: FDA-Public Use
  Company Number: PHNU2006DE01470

PATIENT
  Sex: Male

DRUGS (7)
  1. SANDIMMUNE [Suspect]
     Indication: RENAL TRANSPLANT
     Dosage: 200 MG DAILY
     Route: 048
     Dates: start: 19970101
  2. SANDIMMUNE [Suspect]
     Dosage: 85MG IN THE MORNING, 75MG IN THE EVENING
  3. DECORTIN-H [Concomitant]
     Dosage: 2.5 MG DAILY
     Route: 048
  4. BISOPROLOL [Concomitant]
     Dosage: 1.25 MG, BID
     Route: 048
  5. FLUVASTATIN [Concomitant]
  6. MAGNESIUM [Concomitant]
  7. ASPIRIN [Concomitant]

REACTIONS (19)
  - APHASIA [None]
  - ARTHROPATHY [None]
  - BLOOD CHOLESTEROL INCREASED [None]
  - BLOOD TRIGLYCERIDES INCREASED [None]
  - CARPAL TUNNEL SYNDROME [None]
  - CORONARY ARTERY DISEASE [None]
  - DIZZINESS [None]
  - DRUG LEVEL FLUCTUATING [None]
  - FIBULA FRACTURE [None]
  - GAIT DISTURBANCE [None]
  - HEADACHE [None]
  - MUSCLE SPASMS [None]
  - MYALGIA [None]
  - OEDEMA PERIPHERAL [None]
  - PERIPHERAL ARTERIAL OCCLUSIVE DISEASE [None]
  - SPORTS INJURY [None]
  - TOOTHACHE [None]
  - VASCULAR GRAFT [None]
  - WHITE BLOOD CELL COUNT INCREASED [None]
